FAERS Safety Report 21016774 (Version 1)
Quarter: 2022Q2

REPORT INFORMATION
  Report Type: Spontaneous
  Country: TW (occurrence: TW)
  Receive Date: 20220628
  Receipt Date: 20220628
  Transmission Date: 20220721
  Serious: Yes (Death, Other)
  Sender: FDA-Public Use
  Company Number: TW-009507513-2206TWN007632

PATIENT
  Age: 78 Year
  Sex: Female
  Weight: 47.8 kg

DRUGS (1)
  1. KEYTRUDA [Suspect]
     Active Substance: PEMBROLIZUMAB
     Indication: Lymphoma
     Dosage: 100 MILLIGRAM
     Dates: start: 20220408

REACTIONS (3)
  - Gastrointestinal haemorrhage [Fatal]
  - Pulmonary embolism [Fatal]
  - Product use issue [Unknown]

NARRATIVE: CASE EVENT DATE: 20220408
